FAERS Safety Report 15035080 (Version 5)
Quarter: 2019Q1

REPORT INFORMATION
  Report Type: Spontaneous
  Country: US (occurrence: US)
  Receive Date: 20180620
  Receipt Date: 20190211
  Transmission Date: 20190417
  Serious: Yes (Other)
  Sender: FDA-Public Use
  Company Number: US-PFIZER INC-2018247549

PATIENT
  Age: 76 Year
  Sex: Female
  Weight: 63 kg

DRUGS (2)
  1. XELJANZ [Suspect]
     Active Substance: TOFACITINIB CITRATE
     Indication: RHEUMATOID ARTHRITIS
     Dosage: 5 MG TWICE A DAY (IN THE MORNING AND IN THE EVENING)
     Route: 048
     Dates: start: 2018, end: 2018
  2. XELJANZ [Suspect]
     Active Substance: TOFACITINIB CITRATE
     Indication: OSTEOARTHRITIS
     Dosage: 5 MG TWICE A DAY (IN THE MORNING AND IN THE EVENING)
     Route: 048
     Dates: start: 2018

REACTIONS (6)
  - Chronic sinusitis [Unknown]
  - Fall [Recovering/Resolving]
  - Upper respiratory tract infection [Unknown]
  - Therapeutic response unexpected [Unknown]
  - Infection [Unknown]
  - Chest injury [Recovering/Resolving]

NARRATIVE: CASE EVENT DATE: 20180924
